FAERS Safety Report 10401393 (Version 1)
Quarter: 2014Q3

REPORT INFORMATION
  Report Type: Spontaneous
  Country: US (occurrence: US)
  Receive Date: 20140822
  Receipt Date: 20140822
  Transmission Date: 20150326
  Serious: Yes (Other)
  Sender: FDA-Public Use
  Company Number: US-BRISTOL-MYERS SQUIBB COMPANY-21321781

PATIENT
  Age: 75 Year
  Sex: Female
  Weight: 96.14 kg

DRUGS (1)
  1. ORENCIA [Suspect]
     Active Substance: ABATACEPT
     Indication: RHEUMATOID ARTHRITIS
     Dosage: LAST INF:12AUG14
     Route: 042
     Dates: start: 201401, end: 201402

REACTIONS (4)
  - Gait disturbance [Unknown]
  - Skin cancer [Unknown]
  - Sinusitis [Unknown]
  - Hypertension [Unknown]
